FAERS Safety Report 8521071-7 (Version None)
Quarter: 2012Q3

REPORT INFORMATION
  Report Type: 
  Country: None (occurrence: None)
  Receive Date: 20120719
  Receipt Date: 20120716
  Transmission Date: 20120928
  Serious: Yes (Hospitalization)
  Sender: FDA-Public Use
  Company Number: FR-ROCHE-1084720

PATIENT
  Sex: Male
  Weight: 99.5 kg

DRUGS (12)
  1. ARIXTRA [Concomitant]
     Indication: PULMONARY EMBOLISM
  2. MABTHERA [Suspect]
     Dosage: LAST DOSE 18/JUN/2012
     Route: 058
     Dates: start: 20120420
  3. MABTHERA [Suspect]
     Route: 058
     Dates: start: 20120618, end: 20120713
  4. ARIXTRA [Concomitant]
     Indication: THROMBOSIS
     Dates: start: 20120326
  5. ESCITALOPRAM OXALATE [Suspect]
     Indication: PRODUCT USED FOR UNKNOWN INDICATION
  6. ACEBUTOLOL [Concomitant]
  7. SOLU-MEDROL [Concomitant]
     Indication: BRONCHOSPASM
     Dates: start: 20120321, end: 20120321
  8. IRBESARTAN AND HYDROCHLOROTHIAZIDE [Concomitant]
  9. BENDAMUSTINE HYDROCHLORIDE [Suspect]
     Indication: B-CELL LYMPHOMA
     Dosage: DATE OF LAST DOSE PRIOR TO SAE 23/MAR/2012
     Route: 042
     Dates: start: 20120322
  10. MABTHERA [Suspect]
     Indication: B-CELL LYMPHOMA
     Dosage: DATE OF LAST DOSE PRIOR TO SAE 18/JUN/2012
     Route: 042
     Dates: start: 20120321
  11. FUROSEMIDE [Suspect]
     Indication: PRODUCT USED FOR UNKNOWN INDICATION
  12. BENDAMUSTINE HYDROCHLORIDE [Suspect]
     Dosage: LAST DOSE: 19 JUNE 2012
     Route: 042
     Dates: start: 20120618, end: 20120713

REACTIONS (2)
  - SKIN TOXICITY [None]
  - DRUG RASH WITH EOSINOPHILIA AND SYSTEMIC SYMPTOMS [None]
